FAERS Safety Report 8224923-0 (Version None)
Quarter: 2012Q1

REPORT INFORMATION
  Report Type: 
  Country: None (occurrence: None)
  Receive Date: 20120321
  Receipt Date: 20120312
  Transmission Date: 20120608
  Serious: Yes (Other)
  Sender: FDA-Public Use
  Company Number: BE-JNJFOC-20120303410

PATIENT
  Age: 40 Year
  Sex: Female

DRUGS (3)
  1. CIRRUS [Suspect]
     Route: 065
  2. D-CURE [Concomitant]
     Indication: PRODUCT USED FOR UNKNOWN INDICATION
     Route: 065
  3. CIRRUS [Suspect]
     Indication: PRODUCT USED FOR UNKNOWN INDICATION
     Route: 065
     Dates: start: 20120201, end: 20120201

REACTIONS (4)
  - BRADYCARDIA [None]
  - MALAISE [None]
  - FEELING ABNORMAL [None]
  - PRODUCT COUNTERFEIT [None]
